FAERS Safety Report 11927677 (Version 1)
Quarter: 2016Q1

REPORT INFORMATION
  Report Type: Spontaneous
  Country: US (occurrence: US)
  Receive Date: 20160119
  Receipt Date: 20160119
  Transmission Date: 20160526
  Serious: No
  Sender: FDA-Public Use
  Company Number: US-PFIZER INC-2016005514

PATIENT
  Age: 68 Year
  Sex: Female

DRUGS (2)
  1. RELAFEN [Suspect]
     Active Substance: NABUMETONE
     Dosage: UNK
  2. GABAPENTIN. [Suspect]
     Active Substance: GABAPENTIN
     Dosage: UNK

REACTIONS (1)
  - Agitation [Unknown]
